FAERS Safety Report 5302996-2 (Version None)
Quarter: 2007Q2

REPORT INFORMATION
  Report Type: 
  Country: None (occurrence: None)
  Receive Date: 20070413
  Receipt Date: 20070402
  Transmission Date: 20071010
  Serious: Yes (Hospitalization)
  Sender: FDA-Public Use
  Company Number: 1-14734718/MED-07059

PATIENT
  Age: 60 Year
  Sex: Female
  Weight: 72.1 kg

DRUGS (8)
  1. BACTRIM DS [Suspect]
     Indication: BRONCHITIS
     Dosage: ONE TABLET ON 3/16/2007, ORAL
     Route: 048
     Dates: start: 20070316, end: 20070316
  2. ALBUTEROL [Concomitant]
  3. ATROVENT [Concomitant]
  4. ADVAIR DISKUS 100/50 [Concomitant]
  5. SINGULAIR [Concomitant]
  6. PREDNISONE TAB [Concomitant]
  7. PRILOSEC [Concomitant]
  8. FLEXERIL [Concomitant]

REACTIONS (8)
  - BLISTER [None]
  - BURNING SENSATION [None]
  - IMPAIRED HEALING [None]
  - LOSS OF CONSCIOUSNESS [None]
  - OEDEMA MOUTH [None]
  - RASH MACULAR [None]
  - RESPIRATORY ARREST [None]
  - SWOLLEN TONGUE [None]
